FAERS Safety Report 5608681-1 (Version None)
Quarter: 2008Q1

REPORT INFORMATION
  Report Type: 
  Country: None (occurrence: None)
  Receive Date: 20080131
  Receipt Date: 20080118
  Transmission Date: 20080703
  Serious: Yes (Other)
  Sender: FDA-Public Use
  Company Number: US-PFIZER INC-2007072233

PATIENT
  Sex: Female
  Weight: 72.6 kg

DRUGS (5)
  1. CHANTIX [Suspect]
     Indication: SMOKING CESSATION THERAPY
     Dates: start: 20070805, end: 20070814
  2. MORPHINE [Concomitant]
  3. PAXIL [Concomitant]
  4. CLONAZEPAM [Concomitant]
  5. NEURONTIN [Concomitant]

REACTIONS (5)
  - CATARACT OPERATION [None]
  - DEPRESSION [None]
  - DIZZINESS [None]
  - MALAISE [None]
  - NAUSEA [None]
